FAERS Safety Report 23360418 (Version 1)
Quarter: 2024Q1

REPORT INFORMATION
  Report Type: Report from Study
  Country: BR (occurrence: BR)
  Receive Date: 20240103
  Receipt Date: 20240103
  Transmission Date: 20240410
  Serious: Yes (Hospitalization, Other)
  Sender: FDA-Public Use
  Company Number: BR-JNJFOC-20231277208

PATIENT
  Age: 57 Year
  Sex: Female
  Weight: 93 kg

DRUGS (2)
  1. SIMPONI [Suspect]
     Active Substance: GOLIMUMAB
     Indication: Rheumatoid arthritis
     Dosage: LAST DRUG APPLICATION: 27-NOV-2023
     Route: 058
     Dates: start: 202306
  2. SIMPONI [Suspect]
     Active Substance: GOLIMUMAB

REACTIONS (6)
  - Pulmonary haemorrhage [Recovering/Resolving]
  - Fall [Unknown]
  - Spinal fracture [Unknown]
  - Rib fracture [Unknown]
  - Wrist fracture [Unknown]
  - Drain site complication [Unknown]

NARRATIVE: CASE EVENT DATE: 20231030
